FAERS Safety Report 6276176-0 (Version None)
Quarter: 2009Q3

REPORT INFORMATION
  Report Type: 
  Country: None (occurrence: None)
  Receive Date: 20090717
  Receipt Date: 20090717
  Transmission Date: 20100115
  Serious: Yes (Disabling)
  Sender: FDA-Public Use
  Company Number: None

PATIENT
  Age: 58 Year
  Sex: Female
  Weight: 69.8539 kg

DRUGS (4)
  1. ZICAM ORAL SPRAY [Suspect]
     Indication: NASOPHARYNGITIS
     Dosage: SPRAY 1-2 ORAL
     Route: 048
     Dates: start: 20070101
  2. ZICAM ORAL SPRAY [Suspect]
     Indication: SINUS DISORDER
     Dosage: SPRAY 1-2 ORAL
     Route: 048
     Dates: start: 20070101
  3. ZICAM ORAL SPRAY [Suspect]
     Indication: NASOPHARYNGITIS
     Dosage: SPRAY 1-2 ORAL
     Route: 048
     Dates: start: 20080101
  4. ZICAM ORAL SPRAY [Suspect]
     Indication: SINUS DISORDER
     Dosage: SPRAY 1-2 ORAL
     Route: 048
     Dates: start: 20080101

REACTIONS (2)
  - AGEUSIA [None]
  - ANOSMIA [None]
